FAERS Safety Report 9513847 (Version 4)
Quarter: 2014Q1

REPORT INFORMATION
  Report Type: Spontaneous
  Country: US (occurrence: US)
  Receive Date: 20130910
  Receipt Date: 20140131
  Transmission Date: 20141002
  Serious: Yes (Other)
  Sender: FDA-Public Use
  Company Number: PHEH2013US018910

PATIENT
  Sex: Male

DRUGS (7)
  1. TEGRETOL [Suspect]
     Dosage: 600MG A DAY
     Dates: start: 1996
  2. TEGRETOL [Suspect]
     Dosage: 100 MG (OF 200MG TABLETS), BID
  3. CARBAMAZEPINE [Suspect]
     Dosage: UNK UKN, UNK
  4. PLAVIX [Concomitant]
     Dosage: UNK UKN, UNK
  5. CRESTOR [Concomitant]
     Dosage: UNK UKN, UNK
  6. DIOVAN HCT [Concomitant]
     Dosage: UNK UKN, UNK
  7. MVI [Concomitant]
     Dosage: UNK UKN, UNK

REACTIONS (8)
  - Blindness unilateral [Unknown]
  - Fall [Unknown]
  - Loss of consciousness [Unknown]
  - Fracture [Unknown]
  - Hypoaesthesia [Unknown]
  - Visual acuity reduced [Unknown]
  - Asthenia [Unknown]
  - Dizziness [Unknown]
